FAERS Safety Report 23604495 (Version 1)
Quarter: 2024Q1

REPORT INFORMATION
  Report Type: Spontaneous
  Country: FR (occurrence: FR)
  Receive Date: 20240307
  Receipt Date: 20240307
  Transmission Date: 20240410
  Serious: Yes (Death, Hospitalization)
  Sender: FDA-Public Use
  Company Number: None

PATIENT
  Age: 71 Year
  Sex: Female

DRUGS (15)
  1. VALGANCICLOVIR [Suspect]
     Active Substance: VALGANCICLOVIR
     Indication: Cytomegalovirus infection reactivation
     Route: 048
     Dates: start: 201003, end: 20100323
  2. GANCICLOVIR [Suspect]
     Active Substance: GANCICLOVIR
     Indication: Cytomegalovirus infection reactivation
  3. PREDNISONE [Suspect]
     Active Substance: PREDNISONE
  4. CELLCEPT [Suspect]
     Active Substance: MYCOPHENOLATE MOFETIL
     Indication: Renal transplant
     Dosage: 1 DF THREE TIMES DAILY ORALLY?DAILY DOSE: 1500 MILLIGRAM
     Route: 048
     Dates: start: 200906
  5. LINEZOLID [Suspect]
     Active Substance: LINEZOLID
     Indication: Product used for unknown indication
     Dosage: 2 DF ONCE DAILY?DAILY DOSE: 1200 MILLIGRAM
     Route: 048
     Dates: end: 20100324
  6. PROGRAF [Concomitant]
     Active Substance: TACROLIMUS
  7. CERTICAN [Concomitant]
     Active Substance: EVEROLIMUS
     Dates: start: 20100111, end: 20100121
  8. ATENOLOL [Concomitant]
     Active Substance: ATENOLOL
     Dosage: DAILY DOSE: 50 MILLIGRAM
     Dates: start: 20090627
  9. Bactrim fabile [Concomitant]
     Dates: start: 20090831
  10. ASPIRIN DL-LYSINE [Concomitant]
     Active Substance: ASPIRIN DL-LYSINE
     Dosage: DAILY DOSE: 100 MILLIGRAM
     Dates: start: 20091217
  11. TAHOR [Concomitant]
     Active Substance: ATORVASTATIN CALCIUM
     Dosage: DAILY DOSE: 10 MILLIGRAM
     Dates: start: 20090608
  12. OMEPRAZOLE [Concomitant]
     Active Substance: OMEPRAZOLE
     Dates: start: 20091008
  13. SODIUM BICARBONATE [Concomitant]
     Active Substance: SODIUM BICARBONATE
     Dates: start: 20090909
  14. TRAMADOL HYDROCHLORIDE [Concomitant]
     Active Substance: TRAMADOL HYDROCHLORIDE
     Dates: start: 20091216, end: 20091217
  15. CANCIDAS [Concomitant]
     Active Substance: CASPOFUNGIN ACETATE
     Indication: Aspergillus infection

REACTIONS (3)
  - Septic shock [Fatal]
  - Pancytopenia [Fatal]
  - Overdose [Unknown]

NARRATIVE: CASE EVENT DATE: 20100301
